FAERS Safety Report 5242485-7 (Version None)
Quarter: 2007Q1

REPORT INFORMATION
  Report Type: 
  Country: None (occurrence: None)
  Receive Date: 20061201
  Receipt Date: 20060730
  Transmission Date: 20070707
  Serious: No
  Sender: FDA-Public Use
  Company Number: 2006PV010695

PATIENT
  Age: 68 Year
  Sex: Female
  Weight: 119.7496 kg

DRUGS (4)
  1. BYETTA [Suspect]
     Indication: DIABETES MELLITUS NON-INSULIN-DEPENDENT
     Dosage: SEE IMAGE
     Route: 058
     Dates: start: 20060221, end: 20060301
  2. BYETTA [Suspect]
     Indication: DIABETES MELLITUS NON-INSULIN-DEPENDENT
     Dosage: SEE IMAGE
     Route: 058
     Dates: start: 20060727
  3. BYETTA [Suspect]
  4. METFORMIN HCL [Concomitant]

REACTIONS (10)
  - ABDOMINAL PAIN LOWER [None]
  - BINGE EATING [None]
  - CHILLS [None]
  - CONSTIPATION [None]
  - DECREASED APPETITE [None]
  - DIARRHOEA [None]
  - DIZZINESS [None]
  - MENTAL DISORDER [None]
  - NAUSEA [None]
  - WEIGHT DECREASED [None]
